FAERS Safety Report 4694899-1 (Version None)
Quarter: 2005Q2

REPORT INFORMATION
  Report Type: 
  Country: None (occurrence: None)
  Receive Date: 20050617
  Receipt Date: 20050606
  Transmission Date: 20051028
  Serious: Yes (Hospitalization, Other)
  Sender: FDA-Public Use
  Company Number: 2005060696

PATIENT
  Age: 50 Year
  Sex: Male
  Weight: 101.1521 kg

DRUGS (11)
  1. BEXTRA [Suspect]
     Indication: OSTEOARTHRITIS
     Dosage: 20 MG (20 MG, 1 IN 1 D), ORAL
     Route: 048
     Dates: start: 20020101, end: 20050524
  2. ALL OTHER THERAPEUTIC PRODUCTS (ALL OTHER THERAPEUTIC PRODUCTS) [Concomitant]
  3. DILTIAZEM [Concomitant]
  4. ZOCOR [Concomitant]
  5. ASPIRIN [Concomitant]
  6. CARDIZEM CD [Concomitant]
  7. PLAVIX 9CLOPIDOGREL SULFATE) [Concomitant]
  8. GLUCOPHAGE XR (METFORMIN HYDROCHLORIDE) [Concomitant]
  9. NEXIUM [Concomitant]
  10. GLUCOTROL [Concomitant]
  11. ALTACE [Concomitant]

REACTIONS (5)
  - CORONARY ARTERY SURGERY [None]
  - DIABETES MELLITUS [None]
  - GASTROOESOPHAGEAL REFLUX DISEASE [None]
  - NEUROPATHY [None]
  - TRIPLE VESSEL BYPASS GRAFT [None]
